FAERS Safety Report 6404417-5 (Version None)
Quarter: 2009Q4

REPORT INFORMATION
  Report Type: 
  Country: None (occurrence: None)
  Receive Date: 20091016
  Receipt Date: 20091013
  Transmission Date: 20100525
  Serious: Yes (Other)
  Sender: FDA-Public Use
  Company Number: DE-MERCK-0907DEU00079

PATIENT
  Age: 56 Year
  Sex: Male

DRUGS (8)
  1. JANUVIA [Suspect]
     Route: 048
     Dates: start: 20090628, end: 20090702
  2. HYDROCHLOROTHIAZIDE AND TRIAMTERENE [Concomitant]
     Route: 048
  3. METOPROLOL SUCCINATE [Concomitant]
     Route: 048
  4. VASOTEC [Concomitant]
     Route: 048
  5. ATORVASTATIN CALCIUM [Concomitant]
     Route: 065
  6. ACETYLDIGOXIN [Concomitant]
     Route: 065
  7. METFORMIN HYDROCHLORIDE [Concomitant]
     Route: 065
  8. MAGNESIUM OXIDE [Concomitant]
     Route: 048

REACTIONS (1)
  - PENILE OEDEMA [None]
